FAERS Safety Report 16829081 (Version 2)
Quarter: 2020Q1

REPORT INFORMATION
  Report Type: Spontaneous
  Country: GB (occurrence: GB)
  Receive Date: 20190919
  Receipt Date: 20200106
  Transmission Date: 20200409
  Serious: Yes (Hospitalization)
  Sender: FDA-Public Use
  Company Number: PHHY2019GB217193

PATIENT
  Age: 85 Year
  Sex: Male

DRUGS (12)
  1. FINASTERIDE. [Suspect]
     Active Substance: FINASTERIDE
     Route: 065
  2. APIXABAN [Concomitant]
     Active Substance: APIXABAN
     Route: 065
  3. MIRTAZAPINE. [Suspect]
     Active Substance: MIRTAZAPINE
     Route: 065
  4. MIRTAZAPINE. [Suspect]
     Active Substance: MIRTAZAPINE
     Indication: PRODUCT USED FOR UNKNOWN INDICATION
     Dosage: UNK
     Route: 048
  5. MIRABEGRON [Suspect]
     Active Substance: MIRABEGRON
     Route: 065
  6. FINASTERIDE. [Suspect]
     Active Substance: FINASTERIDE
     Indication: BENIGN PROSTATIC HYPERPLASIA
     Dosage: UNK
     Route: 048
  7. TAMSULOSIN HYDROCHLORIDE. [Suspect]
     Active Substance: TAMSULOSIN HYDROCHLORIDE
     Indication: BENIGN PROSTATIC HYPERPLASIA
     Dosage: UNK
     Route: 065
  8. MIRABEGRON [Suspect]
     Active Substance: MIRABEGRON
     Indication: HYPERTONIC BLADDER
     Dosage: UNK
     Route: 065
  9. MIRTAZAPINE. [Suspect]
     Active Substance: MIRTAZAPINE
     Route: 065
  10. FINASTERIDE. [Suspect]
     Active Substance: FINASTERIDE
     Route: 065
  11. MIRABEGRON [Suspect]
     Active Substance: MIRABEGRON
     Route: 065
  12. APIXABAN [Concomitant]
     Active Substance: APIXABAN
     Indication: PULMONARY EMBOLISM
     Dosage: 5 MG, BID
     Route: 065

REACTIONS (3)
  - Oxygen saturation decreased [Recovering/Resolving]
  - Platypnoea [Recovered/Resolved]
  - Orthostatic hypotension [Recovered/Resolved]
